FAERS Safety Report 25952545 (Version 1)
Quarter: 2025Q4

REPORT INFORMATION
  Report Type: Report from Study
  Country: PH (occurrence: PH)
  Receive Date: 20251023
  Receipt Date: 20251023
  Transmission Date: 20260118
  Serious: Yes (Death)
  Sender: OTSUKA
  Company Number: PH-MMM-Otsuka-TFGXHZI1

PATIENT
  Sex: Male

DRUGS (3)
  1. TOLVAPTAN [Suspect]
     Active Substance: TOLVAPTAN
     Indication: Polyuria
     Dosage: 0.25 DF, TIW  (15 MG 1/4 TABLET EVERY TUESDAY - THURSDAY)
     Dates: start: 202502, end: 20251010
  2. TOLVAPTAN [Suspect]
     Active Substance: TOLVAPTAN
     Indication: Swelling
  3. TOLVAPTAN [Suspect]
     Active Substance: TOLVAPTAN
     Indication: Cardiac failure

REACTIONS (4)
  - Cardiac arrest [Fatal]
  - Wrong technique in product usage process [Unknown]
  - Inappropriate schedule of product administration [Unknown]
  - Prescribed underdose [Unknown]

NARRATIVE: CASE EVENT DATE: 20250201
